FAERS Safety Report 5736467-6 (Version None)
Quarter: 2008Q2

REPORT INFORMATION
  Report Type: 
  Country: None (occurrence: None)
  Receive Date: 20080509
  Receipt Date: 20080509
  Transmission Date: 20081010
  Serious: Yes (Death, Hospitalization)
  Sender: FDA-Public Use
  Company Number: None

PATIENT
  Sex: Female
  Weight: 47.6277 kg

DRUGS (1)
  1. DIGITEK  25 MG  ACTAVIS TOTOWA [Suspect]
     Indication: HEART RATE IRREGULAR
     Dosage: 1/2 DAILY PO
     Route: 048

REACTIONS (4)
  - DEHYDRATION [None]
  - ILL-DEFINED DISORDER [None]
  - PHARMACEUTICAL PRODUCT COMPLAINT [None]
  - THERAPEUTIC AGENT TOXICITY [None]
